FAERS Safety Report 6390119-0 (Version None)
Quarter: 2009Q4

REPORT INFORMATION
  Report Type: 
  Country: None (occurrence: None)
  Receive Date: 20091003
  Receipt Date: 20090914
  Transmission Date: 20100525
  Serious: Yes (Hospitalization, Other)
  Sender: FDA-Public Use
  Company Number: AUR-APL-2009-00716

PATIENT
  Age: 53 Year
  Sex: Male
  Weight: 114.76 kg

DRUGS (12)
  1. LISINOPRIL [Suspect]
     Indication: HYPERTENSION
     Dosage: 20MG, DAILY, ORAL
     Route: 048
     Dates: start: 20070402, end: 20070724
  2. CHANTIX [Suspect]
     Indication: EX-TOBACCO USER
     Dosage: 1MG, BID, ORAL
     Route: 048
     Dates: start: 20070608, end: 20070724
  3. SIMVASTATIN [Concomitant]
  4. TADALAFIL [Concomitant]
  5. MULTI-VITAMIN [Concomitant]
  6. VITAMIN B COMPLEX CAP [Concomitant]
  7. NAPROXEN [Concomitant]
  8. HYDROCODONE BITARTRATE AND ACETAMINOPHEN [Concomitant]
  9. ASPIRIN [Concomitant]
  10. AMRIX [Concomitant]
  11. CIPROFLOXACIN HCL [Concomitant]
  12. METRONIDAZOLE [Concomitant]

REACTIONS (3)
  - ANGIOEDEMA [None]
  - RESPIRATORY DISTRESS [None]
  - WHEEZING [None]
